FAERS Safety Report 6534222-0 (Version None)
Quarter: 2010Q1

REPORT INFORMATION
  Report Type: 
  Country: None (occurrence: None)
  Receive Date: 20100112
  Receipt Date: 20100105
  Transmission Date: 20100710
  Serious: Yes (Other)
  Sender: FDA-Public Use
  Company Number: PHHY2010JP00846

PATIENT
  Age: 46 Year
  Sex: Female

DRUGS (3)
  1. DIOVAN HCT [Suspect]
     Indication: HYPERTENSION
     Dosage: ONE TABLET (80/12.5 MG) DAILY
     Route: 048
     Dates: start: 20090326
  2. ADALAT [Concomitant]
     Route: 048
  3. ARTIST [Concomitant]
     Route: 048

REACTIONS (3)
  - FALL [None]
  - HYPOKALAEMIA [None]
  - PRIMARY HYPERALDOSTERONISM [None]
